FAERS Safety Report 22072549 (Version 2)
Quarter: 2023Q1

REPORT INFORMATION
  Report Type: Spontaneous
  Country: FR (occurrence: FR)
  Receive Date: 20230308
  Receipt Date: 20230329
  Transmission Date: 20230417
  Serious: Yes (Hospitalization, Other)
  Sender: FDA-Public Use
  Company Number: FR-AFSSAPS-TS2023000207

PATIENT
  Age: 83 Year
  Sex: Female
  Weight: 98 kg

DRUGS (7)
  1. IPRATROPIUM [Suspect]
     Active Substance: IPRATROPIUM
     Indication: Dyspnoea
     Dosage: 0.5 MILLIGRAM, ONCE A DAY
     Dates: start: 20230218, end: 20230218
  2. ALBUTEROL [Suspect]
     Active Substance: ALBUTEROL
     Indication: Dyspnoea
     Dosage: 5 MILLIGRAM (1 TOTAL)
     Dates: start: 20230218
  3. AMIKACIN [Suspect]
     Active Substance: AMIKACIN
     Indication: Septic shock
     Dosage: 980 MILLIGRAM (1 TOTAL)
     Route: 042
     Dates: start: 20230218, end: 20230218
  4. AMOXICILLIN\CLAVULANIC ACID [Suspect]
     Active Substance: AMOXICILLIN\CLAVULANIC ACID
     Indication: Infection
     Dosage: 1 GRAM (1 TOTAL)
     Route: 042
     Dates: start: 20230217, end: 20230217
  5. CEFTRIAXONE [Suspect]
     Active Substance: CEFTRIAXONE
     Indication: Septic shock
     Dosage: 3 GRAM (1 TOTAL)
     Route: 042
     Dates: start: 20230218, end: 20230219
  6. ONDANSETRON HYDROCHLORIDE [Suspect]
     Active Substance: ONDANSETRON HYDROCHLORIDE
     Indication: Product used for unknown indication
     Dosage: 4 MILLIGRAM (1 TOTAL)
     Route: 042
     Dates: start: 20230218, end: 20230218
  7. ACETAMINOPHEN [Suspect]
     Active Substance: ACETAMINOPHEN
     Indication: Pyrexia
     Dosage: 1 GRAM, ONCE A DAY
     Route: 042
     Dates: start: 20230218

REACTIONS (1)
  - Acute generalised exanthematous pustulosis [Recovering/Resolving]

NARRATIVE: CASE EVENT DATE: 20230218
